FAERS Safety Report 5376425-7 (Version None)
Quarter: 2007Q3

REPORT INFORMATION
  Report Type: 
  Country: None (occurrence: None)
  Receive Date: 20070702
  Receipt Date: 20070621
  Transmission Date: 20080115
  Serious: Yes (Other)
  Sender: FDA-Public Use
  Company Number: US-PFIZER INC-2007051474

PATIENT
  Sex: Male
  Weight: 81.818 kg

DRUGS (2)
  1. NORVASC [Suspect]
     Indication: HYPERTENSION
     Dates: start: 20020101, end: 20061201
  2. WELLBUTRIN [Concomitant]

REACTIONS (2)
  - BIPOLAR DISORDER [None]
  - SKIN DISCOLOURATION [None]
